FAERS Safety Report 25243123 (Version 2)
Quarter: 2025Q2

REPORT INFORMATION
  Report Type: Other
  Country: US (occurrence: US)
  Receive Date: 20250428
  Receipt Date: 20250618
  Transmission Date: 20250717
  Serious: Yes (Death, Other)
  Sender: INTERCEPT PHARMACEUTICALS
  Company Number: US-INTERCEPT-PM2025000900

PATIENT
  Age: 67 Year
  Sex: Female
  Weight: 63.492 kg

DRUGS (12)
  1. OCALIVA [Suspect]
     Active Substance: OBETICHOLIC ACID
     Indication: Primary biliary cholangitis
     Dosage: 5 MILLIGRAM, QD
     Route: 048
     Dates: start: 20160713, end: 20161005
  2. OCALIVA [Suspect]
     Active Substance: OBETICHOLIC ACID
     Dosage: 5 MILLIGRAM, QD
     Route: 048
  3. OCALIVA [Suspect]
     Active Substance: OBETICHOLIC ACID
     Route: 048
  4. OCALIVA [Suspect]
     Active Substance: OBETICHOLIC ACID
     Dosage: 5 MILLIGRAM, QD
     Route: 048
     Dates: end: 202408
  5. OCALIVA [Suspect]
     Active Substance: OBETICHOLIC ACID
     Dosage: 5 MILLIGRAM, QD
     Route: 048
     Dates: start: 202409
  6. URSODIOL [Concomitant]
     Active Substance: URSODIOL
  7. CHOLESTYRAMINE [Concomitant]
     Active Substance: CHOLESTYRAMINE
  8. ULTRAM [Concomitant]
     Active Substance: TRAMADOL HYDROCHLORIDE
  9. OMEPRAZOLE [Concomitant]
     Active Substance: OMEPRAZOLE
  10. OXYCODONE AND ACETAMINOPHEN [Concomitant]
     Active Substance: ACETAMINOPHEN\OXYCODONE HYDROCHLORIDE
  11. NEXIUM I.V. [Concomitant]
     Active Substance: ESOMEPRAZOLE SODIUM
  12. ZANTAC [Concomitant]
     Active Substance: RANITIDINE HYDROCHLORIDE

REACTIONS (1)
  - Death [Fatal]

NARRATIVE: CASE EVENT DATE: 20250415
